FAERS Safety Report 17004365 (Version 1)
Quarter: 2019Q4

REPORT INFORMATION
  Report Type: Report from Study
  Country: CA (occurrence: CA)
  Receive Date: 20191107
  Receipt Date: 20191107
  Transmission Date: 20200122
  Serious: Yes (Other)
  Sender: FDA-Public Use
  Company Number: CA-ORION CORPORATION ORION PHARMA-TREX2019-5233

PATIENT
  Age: 68 Year
  Sex: Female

DRUGS (7)
  1. STELARA [Concomitant]
     Active Substance: USTEKINUMAB
     Route: 065
  2. METHOTREXATE (TRADE NAME UNKNOWN) [Suspect]
     Active Substance: METHOTREXATE
     Indication: PRODUCT USED FOR UNKNOWN INDICATION
     Route: 065
  3. HUMIRA [Concomitant]
     Active Substance: ADALIMUMAB
     Route: 065
  4. COSENTYX [Suspect]
     Active Substance: SECUKINUMAB
     Route: 058
  5. OTEZLA [Concomitant]
     Active Substance: APREMILAST
     Route: 065
  6. SORIATANE [Concomitant]
     Active Substance: ACITRETIN
     Route: 065
  7. COSENTYX [Suspect]
     Active Substance: SECUKINUMAB
     Indication: PSORIATIC ARTHROPATHY
     Route: 058

REACTIONS (5)
  - Psoriatic arthropathy [Unknown]
  - Headache [Unknown]
  - Psoriasis [Unknown]
  - Drug ineffective [Unknown]
  - Cough [Unknown]
